FAERS Safety Report 19808693 (Version 1)
Quarter: 2021Q3

REPORT INFORMATION
  Report Type: Spontaneous
  Country: US (occurrence: US)
  Receive Date: 20210908
  Receipt Date: 20210908
  Transmission Date: 20211014
  Serious: No
  Sender: FDA-Public Use
  Company Number: None

PATIENT
  Age: 46 Year
  Sex: Female
  Weight: 120.15 kg

DRUGS (1)
  1. PHENTERMINE 37.5 MG TABLET [Suspect]
     Active Substance: PHENTERMINE
     Indication: WEIGHT DECREASED
     Dosage: ?          QUANTITY:30 TABLET(S);?
     Route: 048
     Dates: start: 20210828, end: 20210907

REACTIONS (6)
  - Product substitution issue [None]
  - Product formulation issue [None]
  - Drug ineffective [None]
  - Thirst [None]
  - Pollakiuria [None]
  - Suspected counterfeit product [None]

NARRATIVE: CASE EVENT DATE: 20210828
